FAERS Safety Report 10169997 (Version 1)
Quarter: 2014Q2

REPORT INFORMATION
  Report Type: Spontaneous
  Country: US (occurrence: US)
  Receive Date: 20140513
  Receipt Date: 20140513
  Transmission Date: 20141212
  Serious: Yes (Other)
  Sender: FDA-Public Use
  Company Number: CHPA2014US006340

PATIENT
  Age: 65 Year
  Sex: Male

DRUGS (2)
  1. VOLTAREN GEL [Suspect]
     Indication: PAIN
     Dosage: UNK, BID
     Route: 061
  2. VOLTAREN GEL [Suspect]
     Indication: OFF LABEL USE
     Dosage: UNK, BID
     Route: 061
     Dates: start: 2012

REACTIONS (7)
  - Urinary bladder haemorrhage [Recovered/Resolved]
  - Arthropathy [Recovered/Resolved]
  - Urinary retention [Recovered/Resolved]
  - Micturition urgency [Recovered/Resolved]
  - Therapeutic response changed [Unknown]
  - Wrong technique in drug usage process [Unknown]
  - Drug administered at inappropriate site [Unknown]
